FAERS Safety Report 5452327-2 (Version None)
Quarter: 2007Q3

REPORT INFORMATION
  Report Type: 
  Country: None (occurrence: None)
  Receive Date: 20070914
  Receipt Date: 20070905
  Transmission Date: 20080115
  Serious: Yes (Hospitalization, Disabling)
  Sender: FDA-Public Use
  Company Number: US-JNJFOC-20070901411

PATIENT
  Sex: Female
  Weight: 79.38 kg

DRUGS (8)
  1. DURAGESIC-100 [Suspect]
     Route: 062
  2. DURAGESIC-100 [Suspect]
     Indication: PAIN
     Route: 062
  3. FENTANYL TRANSDERMAL SYSTEM [Suspect]
     Indication: PAIN
     Route: 062
  4. LOTENSIN [Concomitant]
     Indication: HYPERTENSION
     Route: 048
  5. PAXIL [Concomitant]
     Indication: BACK PAIN
     Route: 048
  6. DARVOCET [Concomitant]
     Indication: PAIN
     Dosage: 1 EVERY 4 HOURS AS NEEDED
     Route: 048
  7. CELEBREX [Concomitant]
     Indication: FIBROMYALGIA
     Route: 048
  8. LYRICA [Concomitant]
     Indication: PAIN
     Route: 048

REACTIONS (3)
  - DRUG EFFECT DECREASED [None]
  - THROMBOSIS [None]
  - TRANSIENT ISCHAEMIC ATTACK [None]
